FAERS Safety Report 9824117 (Version 3)
Quarter: 2014Q4

REPORT INFORMATION
  Report Type: Spontaneous
  Country: US (occurrence: US)
  Receive Date: 20140116
  Receipt Date: 20141118
  Transmission Date: 20150529
  Serious: Yes (Hospitalization, Other)
  Sender: FDA-Public Use
  Company Number: US-GLAXOSMITHKLINE-A0359037A

PATIENT
  Age: 62 Year
  Sex: Female

DRUGS (12)
  1. DURATUSS [Concomitant]
     Active Substance: GUAIFENESIN\PSEUDOEPHEDRINE HYDROCHLORIDE
  2. HERBAL MEDICATION [Concomitant]
     Active Substance: HERBALS
  3. FLOVENT [Suspect]
     Active Substance: FLUTICASONE PROPIONATE
     Indication: ASTHMA
     Dosage: 4 PUFFS TWICE PER DAY.
     Dates: start: 20031010
  4. UNKNOWN MEDICATION [Concomitant]
     Active Substance: UNSPECIFIED INGREDIENT
  5. DEPO-MEDROL [Concomitant]
     Active Substance: METHYLPREDNISOLONE ACETATE
  6. FLOVENT [Suspect]
     Active Substance: FLUTICASONE PROPIONATE
     Indication: ASTHMA
  7. DIFLUCAN [Concomitant]
     Active Substance: FLUCONAZOLE
  8. ADVAIR HFA [Suspect]
     Active Substance: FLUTICASONE PROPIONATE\SALMETEROL XINAFOATE
     Indication: ASTHMA
     Dosage: 1 PUFF(S), BID
     Route: 055
     Dates: start: 200105, end: 200105
  9. SEREVENT [Suspect]
     Active Substance: SALMETEROL XINAFOATE
     Indication: PRODUCT USED FOR UNKNOWN INDICATION
     Dosage: 50 UG, U
     Dates: start: 20111019
  10. COMBIVENT [Concomitant]
     Active Substance: ALBUTEROL SULFATE\IPRATROPIUM BROMIDE
  11. AZMACORT [Concomitant]
     Active Substance: TRIAMCINOLONE ACETONIDE
  12. FLOVENT [Suspect]
     Active Substance: FLUTICASONE PROPIONATE
     Indication: DYSPNOEA
     Dosage: 220 MCG.220 MCG. UNKNOWN DOSING.
     Route: 065
     Dates: start: 200310

REACTIONS (14)
  - Malaise [Recovered/Resolved]
  - Upper respiratory tract infection [Unknown]
  - Limb injury [Unknown]
  - Drug ineffective [Unknown]
  - Limb operation [Unknown]
  - Accident [Unknown]
  - Fungal infection [Not Recovered/Not Resolved]
  - Contusion [Unknown]
  - Fall [Unknown]
  - Treatment noncompliance [Unknown]
  - Incorrect dose administered [Unknown]
  - Hospitalisation [Unknown]
  - Cough [Not Recovered/Not Resolved]
  - Joint injury [Unknown]

NARRATIVE: CASE EVENT DATE: 200105
